FAERS Safety Report 4612886-6 (Version None)
Quarter: 2005Q1

REPORT INFORMATION
  Report Type: 
  Country: None (occurrence: None)
  Receive Date: 20050318
  Receipt Date: 20050201
  Transmission Date: 20050727
  Serious: Yes (Hospitalization)
  Sender: FDA-Public Use
  Company Number: FR-ROCHE-394214

PATIENT
  Age: 49 Year
  Sex: Female

DRUGS (14)
  1. MYCOPHENOLATE MOFETIL [Suspect]
     Route: 065
     Dates: start: 20041208, end: 20041219
  2. MYCOPHENOLATE MOFETIL [Suspect]
     Route: 065
     Dates: start: 20040807, end: 20041116
  3. MYCOPHENOLATE MOFETIL [Suspect]
     Route: 065
     Dates: start: 20041117, end: 20041123
  4. MYCOPHENOLATE MOFETIL [Suspect]
     Route: 065
     Dates: start: 20041124, end: 20041129
  5. CYCLOSPORINE [Suspect]
     Dosage: DOSES ADJUSTED TO REACH PREDEFINED TARGET LEVELS.
     Route: 065
     Dates: start: 20040809, end: 20041211
  6. TACROLIMUS [Suspect]
     Dosage: REJECTION THERAPY.
     Route: 065
     Dates: start: 20041215
  7. METHYLPREDNISOLONE [Suspect]
     Dosage: DOSE TAPERED ACCORDING TO LOCAL PROTOCOL.
     Route: 065
     Dates: start: 20040807
  8. ROVALCYTE [Suspect]
     Indication: DRUG USE FOR UNKNOWN INDICATION
     Route: 065
     Dates: start: 20041001, end: 20041207
  9. BACTRIM [Concomitant]
     Dates: start: 20040811, end: 20041109
  10. BISOPROLOL FUMARATE [Concomitant]
     Dates: start: 20040928
  11. EPOGEN [Concomitant]
     Dates: start: 20040809, end: 20041030
  12. FELODIPINE [Concomitant]
     Dates: start: 20040809, end: 20040928
  13. VALGANCICLOVIR [Concomitant]
     Dates: start: 20040816, end: 20041117
  14. VALSARTAN [Concomitant]
     Dates: start: 20041005

REACTIONS (4)
  - AGRANULOCYTOSIS [None]
  - DIARRHOEA [None]
  - PYELONEPHRITIS ACUTE [None]
  - SALMONELLOSIS [None]
